FAERS Safety Report 5629954-2 (Version None)
Quarter: 2008Q1

REPORT INFORMATION
  Report Type: 
  Country: None (occurrence: None)
  Receive Date: 20080218
  Receipt Date: 20080206
  Transmission Date: 20080703
  Serious: Yes (Other)
  Sender: FDA-Public Use
  Company Number: PT-ROCHE-546385

PATIENT
  Age: 52 Year
  Sex: Female
  Weight: 60 kg

DRUGS (2)
  1. BONIVA [Suspect]
     Indication: OSTEOPOROSIS
     Route: 048
     Dates: start: 20080101, end: 20080101
  2. EVISTA [Concomitant]
     Indication: OSTEOPOROSIS
     Route: 048

REACTIONS (3)
  - ASTHENIA [None]
  - DIZZINESS [None]
  - SYNCOPE [None]
